FAERS Safety Report 11765182 (Version 1)
Quarter: 2015Q4

REPORT INFORMATION
  Report Type: Spontaneous
  Country: US (occurrence: US)
  Receive Date: 20151120
  Receipt Date: 20151120
  Transmission Date: 20160304
  Serious: No
  Sender: FDA-Public Use
  Company Number: US-ELI_LILLY_AND_COMPANY-US201312005817

PATIENT
  Sex: Male

DRUGS (3)
  1. FORTEO [Suspect]
     Active Substance: TERIPARATIDE
     Indication: OSTEOPOROSIS
     Route: 065
  2. FORTEO [Suspect]
     Active Substance: TERIPARATIDE
     Indication: DRUG THERAPY
  3. FORTEO [Suspect]
     Active Substance: TERIPARATIDE
     Indication: BLOOD CALCIUM DECREASED

REACTIONS (7)
  - Malaise [Unknown]
  - Feeling abnormal [Unknown]
  - Abdominal distension [Unknown]
  - Arthralgia [Unknown]
  - Bone disorder [Unknown]
  - Spinal compression fracture [Unknown]
  - Influenza [Unknown]
